FAERS Safety Report 10684537 (Version 1)
Quarter: 2014Q4

REPORT INFORMATION
  Report Type: Spontaneous
  Country: TW (occurrence: TW)
  Receive Date: 20141231
  Receipt Date: 20141231
  Transmission Date: 20150529
  Serious: Yes (Death)
  Sender: FDA-Public Use
  Company Number: TW-009507513-1412TWN012579

PATIENT
  Age: 90 Year
  Sex: Male

DRUGS (1)
  1. FOSAMAX PLUS D [Suspect]
     Active Substance: ALENDRONATE SODIUM\CHOLECALCIFEROL
     Indication: OSTEOPOROSIS
     Dosage: 1 TABLET ONCE WEEKLY, TOTAL DAILY DOSE: 70MG/2800IU / WEEKLY
     Route: 048
     Dates: start: 20130322, end: 20130519

REACTIONS (1)
  - Death [Fatal]
